FAERS Safety Report 16908740 (Version 2)
Quarter: 2020Q3

REPORT INFORMATION
  Report Type: Spontaneous
  Country: US (occurrence: US)
  Receive Date: 20191011
  Receipt Date: 20200807
  Transmission Date: 20201102
  Serious: Yes (Other)
  Sender: FDA-Public Use
  Company Number: US-ABBVIE-19K-163-2955611-00

PATIENT
  Sex: Male

DRUGS (2)
  1. VENCLEXTA [Suspect]
     Active Substance: VENETOCLAX
     Indication: B-CELL LYMPHOMA
     Dosage: 4 TABLETS WITH FOOD AND WATER WEEK 3RD
     Route: 048
     Dates: start: 2019
  2. VENCLEXTA [Suspect]
     Active Substance: VENETOCLAX
     Dosage: TAKE 3 TABLETS WITH A MEAL AND WATER.
     Route: 048

REACTIONS (3)
  - Cough [Unknown]
  - Off label use [Unknown]
  - Blindness [Unknown]

NARRATIVE: CASE EVENT DATE: 2019
